FAERS Safety Report 6314988-5 (Version None)
Quarter: 2009Q3

REPORT INFORMATION
  Report Type: 
  Country: None (occurrence: None)
  Receive Date: 20090819
  Receipt Date: 20090813
  Transmission Date: 20100115
  Serious: Yes (Life-Threatening)
  Sender: FDA-Public Use
  Company Number: B0588539A

PATIENT
  Sex: Male

DRUGS (5)
  1. AUGMENTIN '125' [Suspect]
     Indication: DRUG USE FOR UNKNOWN INDICATION
     Dosage: 2G SINGLE DOSE
     Route: 042
     Dates: start: 20081005, end: 20081005
  2. SUFENTA PRESERVATIVE FREE [Suspect]
     Route: 042
     Dates: start: 20081005, end: 20081005
  3. FLAGYL [Suspect]
     Indication: DRUG USE FOR UNKNOWN INDICATION
     Route: 042
     Dates: start: 20081005, end: 20081005
  4. CELOCURINE [Suspect]
     Route: 042
     Dates: start: 20081005, end: 20081005
  5. DIPRIVAN [Concomitant]
     Route: 065
     Dates: start: 20081005, end: 20081005

REACTIONS (3)
  - ANAPHYLACTIC SHOCK [None]
  - ERYTHEMA [None]
  - OXYGEN SATURATION DECREASED [None]
